FAERS Safety Report 10075457 (Version 1)
Quarter: 2014Q2

REPORT INFORMATION
  Report Type: Spontaneous
  Country: US (occurrence: None)
  Receive Date: 20140411
  Receipt Date: 20140411
  Transmission Date: 20141212
  Serious: Yes (Hospitalization)
  Sender: FDA-Public Use
  Company Number: None

PATIENT
  Age: 67 Year
  Sex: Male
  Weight: 125.19 kg

DRUGS (4)
  1. ABRAXANE [Suspect]
     Indication: PANCREATIC CARCINOMA
     Dosage: 380MG/D1
     Dates: start: 20140404
  2. OXALIPLATIN [Suspect]
     Indication: PANCREATIC CARCINOMA
     Dosage: 215MG/D1
     Dates: start: 20140404
  3. LEUCOVORIN 400MG/M2/IV [Suspect]
     Indication: PANCREATIC CARCINOMA
     Dosage: 400MG/D1
     Dates: start: 20140404
  4. 5-FU [Suspect]
     Indication: PANCREATIC CARCINOMA
     Dosage: 6036MGX48HRS
     Dates: start: 20140404

REACTIONS (5)
  - Fatigue [None]
  - Dyspnoea [None]
  - Cough [None]
  - Pneumonia [None]
  - Lip infection [None]
